FAERS Safety Report 6575899-3 (Version None)
Quarter: 2010Q1

REPORT INFORMATION
  Report Type: 
  Country: None (occurrence: None)
  Receive Date: 20100209
  Receipt Date: 20100201
  Transmission Date: 20100710
  Serious: Yes (Hospitalization)
  Sender: FDA-Public Use
  Company Number: FR-WYE-H13423410

PATIENT
  Sex: Female

DRUGS (6)
  1. INIPOMP [Suspect]
     Route: 048
     Dates: start: 20091021, end: 20091112
  2. LOVENOX [Suspect]
     Indication: THROMBOSIS PROPHYLAXIS
     Dosage: UNKNOWN
     Route: 058
     Dates: start: 20091021, end: 20091117
  3. IMOVANE [Suspect]
     Indication: INSOMNIA
     Dosage: 3.75 MG, FREQUENCY UNKNOWN
     Route: 048
     Dates: start: 20091102, end: 20091109
  4. AMOXICILLIN [Suspect]
     Indication: MENINGITIS
     Dosage: 6 GM, FREQUENCY UNKNOWN
     Route: 042
     Dates: start: 20091021, end: 20091102
  5. AMOXICILLIN [Suspect]
     Dosage: 6 GM, FREQUENCY UNKNOWN
     Route: 042
     Dates: start: 20091103, end: 20091105
  6. ACYCLOVIR [Suspect]
     Indication: ORAL HERPES
     Dosage: 4 DOSAGE FORMS, FREQUENCY UNKNOWN
     Route: 003
     Dates: start: 20091029, end: 20091109

REACTIONS (3)
  - LEUKOPENIA [None]
  - LYMPHOPENIA [None]
  - URTICARIA [None]
